FAERS Safety Report 5288758-3 (Version None)
Quarter: 2007Q2

REPORT INFORMATION
  Report Type: 
  Country: None (occurrence: None)
  Receive Date: 20070405
  Receipt Date: 20070327
  Transmission Date: 20071010
  Serious: Yes (Hospitalization)
  Sender: FDA-Public Use
  Company Number: ES-SANOFI-SYNTHELABO-F01200700424

PATIENT
  Sex: Female
  Weight: 60 kg

DRUGS (4)
  1. CALCIUM W/MAGNESIUM OR PLACEBO [Suspect]
     Dosage: UNK
     Route: 065
  2. FLUOROURACIL [Suspect]
     Dosage: 400 MG/M2 IV BOLUS THEN 600 MG/M2 IV OVER 22 HOURS
     Route: 042
     Dates: start: 20070305, end: 20070306
  3. FOLINIC ACID [Suspect]
     Route: 042
     Dates: start: 20070305, end: 20070306
  4. ELOXATIN [Suspect]
     Indication: COLON CANCER
     Route: 042
     Dates: start: 20070305, end: 20070306

REACTIONS (1)
  - ANGINA UNSTABLE [None]
